FAERS Safety Report 8762747 (Version 1)
Quarter: 2012Q4

REPORT INFORMATION
  Report Type: 
  Country: US (occurrence: US)
  Receive Date: 20120904
  Receipt Date: 20120904
  Transmission Date: 20130627
  Serious: Yes (Death)
  Sender: FDA-Public Use
  Company Number: US-B.I. PHARMACEUTICALS,INC./RIDGEFIELD-2012-BP-21167BP

PATIENT
  Age: 64 Year
  Sex: Male

DRUGS (10)
  1. SPIRIVA [Suspect]
     Indication: BRONCHIAL CARCINOMA
     Dosage: 18 mcg
     Route: 055
     Dates: start: 20120227
  2. SPIRIVA [Suspect]
     Indication: LUNG NEOPLASM MALIGNANT
  3. AMBIEN [Concomitant]
     Indication: INSOMNIA
     Route: 048
  4. LOPRESSOR [Concomitant]
     Indication: CORONARY ARTERY DISEASE
     Dosage: 100 mg
     Route: 048
  5. ALBUTEROL [Concomitant]
     Indication: LUNG CARCINOMA CELL TYPE UNSPECIFIED STAGE 0
     Route: 055
  6. LANTUS [Concomitant]
     Indication: DIABETES MELLITUS
     Route: 058
  7. NEXIUM [Concomitant]
     Indication: GASTROOESOPHAGEAL REFLUX DISEASE
     Dosage: 80 mg
     Route: 048
  8. PLAVIX [Concomitant]
     Indication: CORONARY ARTERY DISEASE
     Dosage: 75 mg
     Route: 048
  9. BABY ASPIRIN [Concomitant]
     Indication: CORONARY ARTERY DISEASE
     Dosage: 81 mg
     Route: 048
  10. FERROS SULFATE [Concomitant]
     Dosage: 650 mg
     Route: 048

REACTIONS (1)
  - Death [Fatal]
